FAERS Safety Report 8540371-8 (Version None)
Quarter: 2012Q3

REPORT INFORMATION
  Report Type: 
  Country: None (occurrence: None)
  Receive Date: 20120726
  Receipt Date: 20110412
  Transmission Date: 20120928
  Serious: No
  Sender: FDA-Public Use
  Company Number: US-ASTRAZENECA-2010SE52934

PATIENT
  Age: 40 Year
  Sex: Male

DRUGS (3)
  1. LEXAPRO [Concomitant]
     Indication: DEPRESSION
     Route: 048
  2. SEROQUEL [Suspect]
     Indication: AFFECTIVE DISORDER
     Route: 048
     Dates: start: 20080101
  3. TRILEPTAL [Concomitant]
     Indication: AFFECTIVE DISORDER

REACTIONS (2)
  - BODY TEMPERATURE FLUCTUATION [None]
  - FEELING COLD [None]
